FAERS Safety Report 16329091 (Version 2)
Quarter: 2019Q2

REPORT INFORMATION
  Report Type: Spontaneous
  Country: US (occurrence: US)
  Receive Date: 20190519
  Receipt Date: 20190612
  Transmission Date: 20190711
  Serious: No
  Sender: FDA-Public Use
  Company Number: US-ASTRAZENECA-2019SE64070

PATIENT
  Age: 732 Month
  Sex: Female
  Weight: 138.3 kg

DRUGS (3)
  1. JARDIANCE [Concomitant]
     Active Substance: EMPAGLIFLOZIN
     Route: 048
     Dates: start: 20181001
  2. INSULIN [Concomitant]
     Active Substance: INSULIN NOS
     Dates: start: 20190321
  3. BYDUREON BCISE [Suspect]
     Active Substance: EXENATIDE
     Indication: TYPE 2 DIABETES MELLITUS
     Route: 058
     Dates: start: 20190121

REACTIONS (4)
  - Incorrect dose administered [Recovered/Resolved]
  - Fatigue [Unknown]
  - Injection site mass [Not Recovered/Not Resolved]
  - Device leakage [Unknown]

NARRATIVE: CASE EVENT DATE: 201901
